FAERS Safety Report 7465618-0 (Version None)
Quarter: 2011Q2

REPORT INFORMATION
  Report Type: 
  Country: None (occurrence: None)
  Receive Date: 20110509
  Receipt Date: 20110503
  Transmission Date: 20111010
  Serious: Yes (Life-Threatening, Hospitalization)
  Sender: FDA-Public Use
  Company Number: CH-ASTRAZENECA-2011SE25929

PATIENT
  Age: 37 Year
  Sex: Female
  Weight: 95 kg

DRUGS (7)
  1. SEROQUEL [Suspect]
     Dosage: 100 MG IN THE MORNING AND 200 MG IN THE EVENING
     Route: 048
     Dates: start: 20110416, end: 20110418
  2. LORAZEPAM [Suspect]
     Dosage: THREE TIMES A DAY WITH TOTAL DAILY DOSE: 1 MG
     Route: 048
     Dates: start: 20110416, end: 20110418
  3. EUTHYROX [Concomitant]
     Indication: HYPOTHYROIDISM
  4. DEPAKENE [Suspect]
     Indication: BIPOLAR DISORDER
     Route: 048
     Dates: end: 20110418
  5. LORAZEPAM [Suspect]
     Dosage: THREE TIMES A DAY WITH TOTAL DAILY DOSE: 2.5 MG
     Route: 048
     Dates: start: 20110408, end: 20110416
  6. SEROQUEL [Suspect]
     Indication: BIPOLAR DISORDER
     Dosage: 200 MG IN THE MORNING AND 300 MG IN THE EVENING
     Route: 048
     Dates: end: 20110416
  7. LITHIUM CARBONATE [Suspect]
     Indication: BIPOLAR DISORDER
     Dosage: 990 MG IN THE MORNING AND 660 MG IN THE EVENING
     Route: 048
     Dates: end: 20110418

REACTIONS (3)
  - CARBON DIOXIDE INCREASED [None]
  - RESPIRATORY DEPRESSION [None]
  - ALTERED STATE OF CONSCIOUSNESS [None]
